FAERS Safety Report 9258637 (Version 1)
Quarter: 2013Q2

REPORT INFORMATION
  Report Type: Spontaneous
  Country: US (occurrence: None)
  Receive Date: 20130425
  Receipt Date: 20130425
  Transmission Date: 20140414
  Serious: Yes (Hospitalization)
  Sender: FDA-Public Use
  Company Number: None

PATIENT
  Age: 59 Year
  Sex: Female
  Weight: 130 kg

DRUGS (20)
  1. LISINOPRIL [Suspect]
     Indication: HYPERTENSION
     Dosage: APPROX 1 YEAR
     Route: 048
  2. LEVOTHYROXINE [Concomitant]
  3. ASPIRIN [Concomitant]
  4. TIOTROPIUM [Concomitant]
  5. GLIMIPERIDE [Concomitant]
  6. CHOLECALCIFEROL [Concomitant]
  7. CYANOCOBALAMIN [Concomitant]
  8. PRAVASTATIN [Concomitant]
  9. DILTIAZEM ER [Concomitant]
  10. METOLAZONE [Concomitant]
  11. DOFETILIDE [Concomitant]
  12. FEBUXOSTAT [Concomitant]
  13. SAXAGLIPTIN/METFORMIN [Concomitant]
  14. EXENATIDE [Concomitant]
  15. FUROSEMIDE [Concomitant]
  16. TRAMADOL [Concomitant]
  17. WARFARIN [Concomitant]
  18. SILDENAFIL [Concomitant]
  19. GABAPENTIN [Concomitant]
  20. CLOPIDOGREL [Concomitant]

REACTIONS (3)
  - Swollen tongue [None]
  - Tachycardia [None]
  - Angioedema [None]
